FAERS Safety Report 15786262 (Version 1)
Quarter: 2019Q1

REPORT INFORMATION
  Report Type: Spontaneous
  Country: US (occurrence: US)
  Receive Date: 20190103
  Receipt Date: 20190103
  Transmission Date: 20190417
  Serious: No
  Sender: FDA-Public Use
  Company Number: US-ANTARES PHARMA, INC.-2018-SPO-SU-0565

PATIENT

DRUGS (1)
  1. SUMATRIPTAN. [Suspect]
     Active Substance: SUMATRIPTAN
     Indication: MIGRAINE
     Dosage: 4 MG, PRN
     Route: 058

REACTIONS (12)
  - Flushing [Unknown]
  - Vomiting [Unknown]
  - Nausea [Unknown]
  - Impaired work ability [Unknown]
  - Dyspnoea [Unknown]
  - Drug ineffective [Unknown]
  - Dehydration [Unknown]
  - Economic problem [Unknown]
  - Hyperhidrosis [Unknown]
  - Diarrhoea [Unknown]
  - Chest discomfort [Unknown]
  - Dizziness [Unknown]
